FAERS Safety Report 4489899-0 (Version None)
Quarter: 2004Q4

REPORT INFORMATION
  Report Type: 
  Country: None (occurrence: None)
  Receive Date: 20041016
  Receipt Date: 20041015
  Transmission Date: 20050328
  Serious: Yes (Disabling)
  Sender: FDA-Public Use
  Company Number: 2004UW19854

PATIENT
  Age: 65 Year
  Sex: Male
  Weight: 74.8435 kg

DRUGS (2)
  1. ATACAND [Suspect]
     Indication: HYPERTENSION
     Dosage: 8 MG DAILY PO
     Route: 048
     Dates: start: 20040622, end: 20040827
  2. NORVASC [Concomitant]

REACTIONS (1)
  - ALOPECIA [None]
